FAERS Safety Report 6955965-0 (Version None)
Quarter: 2010Q3

REPORT INFORMATION
  Report Type: 
  Country: None (occurrence: None)
  Receive Date: 20100826
  Receipt Date: 20100826
  Transmission Date: 20110219
  Serious: No
  Sender: FDA-Public Use
  Company Number: None

PATIENT
  Age: 54 Year
  Sex: Female
  Weight: 89.8122 kg

DRUGS (1)
  1. ZOCOR [Suspect]

REACTIONS (8)
  - AMNESIA [None]
  - EYE DISORDER [None]
  - FIBROMYALGIA [None]
  - MENTAL IMPAIRMENT [None]
  - MUSCLE DISORDER [None]
  - MUSCLE RIGIDITY [None]
  - SLEEP DISORDER [None]
  - VITAMIN D DECREASED [None]
